FAERS Safety Report 9677533 (Version 1)
Quarter: 2013Q4

REPORT INFORMATION
  Report Type: Report from Study
  Country: CA (occurrence: CA)
  Receive Date: 20131108
  Receipt Date: 20131108
  Transmission Date: 20140711
  Serious: Yes (Other)
  Sender: FDA-Public Use
  Company Number: CA-JNJFOC-20131101068

PATIENT
  Age: 34 Year
  Sex: Male
  Weight: 90.1 kg

DRUGS (5)
  1. REMICADE [Suspect]
     Indication: CROHN^S DISEASE
     Route: 042
     Dates: start: 20101109
  2. DICLOFENAC [Concomitant]
     Route: 065
  3. HYDROCORTISONE [Concomitant]
     Route: 065
  4. PREDNISONE [Concomitant]
     Route: 065
  5. OXYCONTIN [Concomitant]
     Route: 065

REACTIONS (3)
  - Road traffic accident [Not Recovered/Not Resolved]
  - Migraine [Not Recovered/Not Resolved]
  - Temporomandibular joint syndrome [Not Recovered/Not Resolved]
